FAERS Safety Report 22617342 (Version 1)
Quarter: 2023Q2

REPORT INFORMATION
  Report Type: Spontaneous
  Country: GB (occurrence: GB)
  Receive Date: 20230620
  Receipt Date: 20230620
  Transmission Date: 20230722
  Serious: Yes (Other)
  Sender: FDA-Public Use
  Company Number: GB-CELLTRION INC.-2023GB012314

PATIENT

DRUGS (1)
  1. INFLIXIMAB [Suspect]
     Active Substance: INFLIXIMAB
     Indication: Colitis ulcerative
     Dosage: 120 MG
     Route: 058
     Dates: start: 202302

REACTIONS (5)
  - Surgery [Unknown]
  - Headache [Unknown]
  - Pyrexia [Unknown]
  - Condition aggravated [Unknown]
  - Product dose omission issue [Unknown]
